FAERS Safety Report 8776806 (Version 1)
Quarter: 2012Q4

REPORT INFORMATION
  Report Type: 
  Country: RO (occurrence: RO)
  Receive Date: 20120910
  Receipt Date: 20120910
  Transmission Date: 20130627
  Serious: Yes (Other)
  Sender: FDA-Public Use
  Company Number: RO-MYLANLABS-2012S1018116

PATIENT
  Age: 47 Year
  Sex: Female

DRUGS (4)
  1. WARFARIN [Suspect]
     Route: 065
  2. FRAGMINE [Concomitant]
     Indication: SKIN TEST
     Dosage: undiluted (prick test) and 10e-1 and 10e-2, 5000IU/0.2mL (intradermal test)
     Route: 023
  3. HEPARIN [Concomitant]
     Dosage: 50IU
     Route: 040
  4. HEPARIN [Concomitant]
     Route: 042

REACTIONS (1)
  - Cholestasis [Unknown]
